FAERS Safety Report 6855560-8 (Version None)
Quarter: 2010Q3

REPORT INFORMATION
  Report Type: 
  Country: None (occurrence: None)
  Receive Date: 20100716
  Receipt Date: 20100716
  Transmission Date: 20110219
  Serious: No
  Sender: FDA-Public Use
  Company Number: None

PATIENT
  Age: 62 Year
  Sex: Female
  Weight: 52.1637 kg

DRUGS (1)
  1. POLYMYXIN B SULFATES AND TRIMETHOPRIM SULFATE [Suspect]
     Dosage: 1 DROP 4 TIMES DAY BEFORE SURG.
     Dates: start: 20100511

REACTIONS (4)
  - EYE SWELLING [None]
  - INSTILLATION SITE ERYTHEMA [None]
  - INSTILLATION SITE REACTION [None]
  - PRODUCT CONTAMINATION [None]
